FAERS Safety Report 21228204 (Version 1)
Quarter: 2022Q3

REPORT INFORMATION
  Report Type: Other
  Country: DE (occurrence: DE)
  Receive Date: 20220818
  Receipt Date: 20220818
  Transmission Date: 20221027
  Serious: Yes (Congenital Anomaly)
  Sender: FDA-Public Use
  Company Number: DE-MACLEODS PHARMA UK LTD-MAC2022036833

PATIENT

DRUGS (6)
  1. PANTOPRAZOLE SODIUM [Suspect]
     Active Substance: PANTOPRAZOLE SODIUM
     Indication: Product used for unknown indication
     Dosage: 20 MILLIGRAM, QD 1 {TRIMESTER} 0. - 40.4. GESTATIONAL WEEK
     Route: 064
     Dates: start: 20210428, end: 20220206
  2. ARIPIPRAZOLE [Suspect]
     Active Substance: ARIPIPRAZOLE
     Indication: Product used for unknown indication
     Dosage: 15 MILLIGRAM, QD (TABLET)(0. - 40.4. GESTATIONAL WEEK, 1 TRIMISTER)
     Route: 064
     Dates: start: 20210428, end: 20220206
  3. CLOZAPINE [Suspect]
     Active Substance: CLOZAPINE
     Indication: Product used for unknown indication
     Dosage: 150 MILLIGRAM, QD (3 X 50 MG/D) TABLET 1 {TRIMESTER} 0. - 40.4. GESTATIONAL WEEK
     Route: 064
     Dates: start: 20210428, end: 20220206
  4. DINOPROSTONE [Concomitant]
     Active Substance: DINOPROSTONE
     Indication: Product used for unknown indication
     Dosage: UNKTRIMESTER: INTRAPARTUM 3 {TRIMESTER}
     Route: 064
  5. INFLUVAC TETRA [Concomitant]
     Active Substance: INFLUENZA VIRUS VACCINE QUADRIVALENT TYPE A+B
     Indication: Product used for unknown indication
     Dosage: UNK 2 {TRIMESTER} 26.1. - 26.1. GESTATIONAL WEEK
     Route: 064
     Dates: start: 20210428, end: 20210428
  6. COMIRNATY [Concomitant]
     Active Substance: TOZINAMERAN
     Indication: Product used for unknown indication
     Dosage: UNK 3 {TRIMESTER} 32.6. - 32.6. GESTATIONAL WEEK
     Route: 064
     Dates: start: 20211214, end: 20211214

REACTIONS (3)
  - Patent ductus arteriosus [Unknown]
  - Hypospadias [Unknown]
  - Foetal exposure during pregnancy [Unknown]
